FAERS Safety Report 23486000 (Version 1)
Quarter: 2024Q1

REPORT INFORMATION
  Report Type: Report from Study
  Country: IT (occurrence: IT)
  Receive Date: 20240206
  Receipt Date: 20240206
  Transmission Date: 20240410
  Serious: Yes (Other)
  Sender: FDA-Public Use
  Company Number: IT-LAT-24138250818Ov

PATIENT

DRUGS (1)
  1. STELARA [Suspect]
     Active Substance: USTEKINUMAB
     Indication: Colitis ulcerative
     Route: 058

REACTIONS (4)
  - Cytomegalovirus infection [Unknown]
  - COVID-19 [Unknown]
  - Cystitis [Unknown]
  - Pruritus [Unknown]
